FAERS Safety Report 5139263-6 (Version None)
Quarter: 2006Q4

REPORT INFORMATION
  Report Type: 
  Country: None (occurrence: None)
  Receive Date: 20061026
  Receipt Date: 20061026
  Transmission Date: 20070319
  Serious: No
  Sender: FDA-Public Use
  Company Number: None

PATIENT
  Age: 30 Year
  Sex: Male
  Weight: 66.6788 kg

DRUGS (2)
  1. LEVAQUIN [Suspect]
     Indication: CROHN'S DISEASE
     Dosage: ONE TABLET PER DAY    DAILY   PO
     Route: 048
     Dates: start: 20060926, end: 20061010
  2. LEVAQUIN [Suspect]
     Indication: CROHN'S DISEASE
     Dosage: ONE TABLET PER DAY    DAILY   PO
     Route: 048
     Dates: start: 20061021, end: 20061021

REACTIONS (10)
  - ARTHRALGIA [None]
  - DECREASED APPETITE [None]
  - DRUG TOXICITY [None]
  - HEADACHE [None]
  - IMPAIRED WORK ABILITY [None]
  - NAUSEA [None]
  - PARAESTHESIA [None]
  - PHARMACEUTICAL PRODUCT COMPLAINT [None]
  - PYREXIA [None]
  - RASH [None]
